FAERS Safety Report 11941219 (Version 2)
Quarter: 2016Q1

REPORT INFORMATION
  Report Type: Spontaneous
  Country: US (occurrence: US)
  Receive Date: 20160122
  Receipt Date: 20160229
  Transmission Date: 20160526
  Serious: Yes (Other)
  Sender: FDA-Public Use
  Company Number: US-009507513-1601USA007578

PATIENT
  Age: 57 Year
  Sex: Female
  Weight: 61.22 kg

DRUGS (2)
  1. GRASTEK [Suspect]
     Active Substance: PHLEUM PRATENSE POLLEN
     Indication: SEASONAL ALLERGY
     Dosage: 1 PILL PER DAY ONCE DAILY
     Route: 060
     Dates: start: 20150105, end: 20150218
  2. ANGELIQ [Concomitant]
     Active Substance: DROSPIRENONE\ESTRADIOL
     Indication: HORMONE REPLACEMENT THERAPY
     Dosage: UNK

REACTIONS (3)
  - Lip swelling [Recovered/Resolved]
  - Diarrhoea [Recovering/Resolving]
  - Abdominal discomfort [Recovering/Resolving]

NARRATIVE: CASE EVENT DATE: 20150118
